FAERS Safety Report 7028682-9 (Version None)
Quarter: 2010Q4

REPORT INFORMATION
  Report Type: 
  Country: None (occurrence: None)
  Receive Date: 20101004
  Receipt Date: 20101004
  Transmission Date: 20110411
  Serious: Yes (Other)
  Sender: FDA-Public Use
  Company Number: None

PATIENT
  Age: 72 Year
  Sex: Female
  Weight: 72.5755 kg

DRUGS (2)
  1. LEVAQUIN [Suspect]
     Indication: BODY TEMPERATURE
     Dosage: 750 MG 1 DAY PO
     Route: 048
     Dates: start: 20100914, end: 20100916
  2. LEVAQUIN [Suspect]
     Indication: OROPHARYNGEAL PAIN
     Dosage: 750 MG 1 DAY PO
     Route: 048
     Dates: start: 20100914, end: 20100916

REACTIONS (18)
  - ANXIETY [None]
  - CHILLS [None]
  - CONFUSIONAL STATE [None]
  - CRYING [None]
  - DEPRESSION [None]
  - DIZZINESS [None]
  - DYSPHONIA [None]
  - HALLUCINATION [None]
  - INSOMNIA [None]
  - MOVEMENT DISORDER [None]
  - NERVOUSNESS [None]
  - NIGHTMARE [None]
  - PRURITUS [None]
  - RASH [None]
  - RESTLESSNESS [None]
  - SLEEP TALKING [None]
  - THINKING ABNORMAL [None]
  - URTICARIA [None]
